FAERS Safety Report 4565312-X (Version None)
Quarter: 2005Q1

REPORT INFORMATION
  Report Type: 
  Country: None (occurrence: None)
  Receive Date: 20050128
  Receipt Date: 20050120
  Transmission Date: 20050727
  Serious: Yes (Disabling, Other)
  Sender: FDA-Public Use
  Company Number: A-US2005-08603

PATIENT
  Age: 66 Year
  Sex: Female

DRUGS (6)
  1. TRACLEER [Suspect]
     Indication: PULMONARY HYPERTENSION
     Dosage: SEE IMAGE
     Route: 048
     Dates: start: 20041101, end: 20041214
  2. TRACLEER [Suspect]
     Indication: PULMONARY HYPERTENSION
     Dosage: SEE IMAGE
     Route: 048
     Dates: start: 20041215, end: 20050116
  3. TAMBOCOR 9FLECAINIDE ACETATE) [Concomitant]
  4. NORVASC [Concomitant]
  5. PREVACID [Concomitant]
  6. LASIX [Concomitant]

REACTIONS (3)
  - ASTHENIA [None]
  - CONCOMITANT DISEASE PROGRESSION [None]
  - PAIN IN EXTREMITY [None]
